FAERS Safety Report 8108156-4 (Version None)
Quarter: 2012Q1

REPORT INFORMATION
  Report Type: 
  Country: None (occurrence: None)
  Receive Date: 20120202
  Receipt Date: 20120124
  Transmission Date: 20120608
  Serious: Yes (Hospitalization)
  Sender: FDA-Public Use
  Company Number: MA-JNJFOC-20120111292

PATIENT
  Age: 62 Year
  Sex: Female

DRUGS (4)
  1. XARELTO [Suspect]
     Indication: THROMBOSIS PROPHYLAXIS
     Route: 048
  2. NALGESIC [Concomitant]
  3. FLOXAPEN [Concomitant]
  4. FERROUS SULFATE TAB [Concomitant]

REACTIONS (2)
  - HAEMATOMA [None]
  - DEVICE DISLOCATION [None]
